FAERS Safety Report 14774485 (Version 1)
Quarter: 2018Q2

REPORT INFORMATION
  Report Type: Spontaneous
  Country: GB (occurrence: GB)
  Receive Date: 20180418
  Receipt Date: 20180418
  Transmission Date: 20180711
  Serious: Yes (Hospitalization, Other)
  Sender: FDA-Public Use
  Company Number: GB-009507513-1802GBR003710

PATIENT
  Age: 73 Year
  Sex: Female
  Weight: 70 kg

DRUGS (1)
  1. KEYTRUDA [Suspect]
     Active Substance: PEMBROLIZUMAB
     Indication: NON-SMALL CELL LUNG CANCER
     Dosage: 200 MG, 21 DAY CYCLE
     Route: 042
     Dates: start: 20171129, end: 20171220

REACTIONS (5)
  - Spinal compression fracture [Unknown]
  - Myasthenia gravis [Not Recovered/Not Resolved]
  - Oxygen saturation decreased [Unknown]
  - Transaminases increased [Recovering/Resolving]
  - Tachycardia [Unknown]

NARRATIVE: CASE EVENT DATE: 20180112
